FAERS Safety Report 7549433-5 (Version None)
Quarter: 2011Q2

REPORT INFORMATION
  Report Type: 
  Country: None (occurrence: None)
  Receive Date: 20110615
  Receipt Date: 20040709
  Transmission Date: 20111010
  Serious: Yes (Hospitalization, Other)
  Sender: FDA-Public Use
  Company Number: PHFR2003GB04363

PATIENT
  Sex: Male

DRUGS (1)
  1. CLOZAPINE [Suspect]
     Indication: SCHIZOPHRENIA
     Dosage: 400 MG, QD
     Route: 048
     Dates: start: 20030819

REACTIONS (7)
  - C-REACTIVE PROTEIN INCREASED [None]
  - MALAISE [None]
  - CONFUSIONAL STATE [None]
  - WEIGHT DECREASED [None]
  - HODGKIN'S DISEASE [None]
  - RED BLOOD CELL SEDIMENTATION RATE INCREASED [None]
  - BLOOD LACTATE DEHYDROGENASE INCREASED [None]
